FAERS Safety Report 7389466-5 (Version None)
Quarter: 2011Q2

REPORT INFORMATION
  Report Type: 
  Country: None (occurrence: None)
  Receive Date: 20110401
  Receipt Date: 20110323
  Transmission Date: 20111010
  Serious: Yes (Hospitalization)
  Sender: FDA-Public Use
  Company Number: JP-BRISTOL-MYERS SQUIBB COMPANY-15644271

PATIENT
  Age: 44 Year
  Sex: Male

DRUGS (7)
  1. NORVIR [Suspect]
     Indication: HIV INFECTION
     Dosage: NORVIR SOFT CAPS
     Route: 048
     Dates: start: 20100108, end: 20100127
  2. DARUNAVIR [Suspect]
     Indication: HIV INFECTION
     Dosage: TAB
     Route: 048
     Dates: start: 20100108, end: 20100127
  3. STOCRIN TABS 600 MG [Suspect]
     Indication: HIV INFECTION
     Route: 048
     Dates: start: 20100128, end: 20100207
  4. ZERIT [Suspect]
     Indication: HIV INFECTION
     Route: 048
     Dates: start: 20100128, end: 20100207
  5. EPIVIR [Suspect]
     Indication: HIV INFECTION
     Dosage: TABS
     Route: 048
     Dates: start: 20100128, end: 20100207
  6. LOPEMIN [Concomitant]
     Indication: DIARRHOEA
     Route: 048
     Dates: start: 20100108, end: 20100127
  7. TRUVADA [Suspect]
     Indication: HIV INFECTION
     Dosage: TAB
     Route: 048
     Dates: start: 20100108, end: 20100127

REACTIONS (3)
  - PLATELET COUNT DECREASED [None]
  - RASH [None]
  - HEPATIC FUNCTION ABNORMAL [None]
